FAERS Safety Report 8415843-7 (Version None)
Quarter: 2012Q2

REPORT INFORMATION
  Report Type: 
  Country: None (occurrence: None)
  Receive Date: 20120606
  Receipt Date: 20120530
  Transmission Date: 20120825
  Serious: Yes (Hospitalization, Other)
  Sender: FDA-Public Use
  Company Number: PHHY2012AU019057

PATIENT
  Sex: Female
  Weight: 92 kg

DRUGS (7)
  1. VALIUM [Concomitant]
     Dosage: 5 MG, 1/2 MANE
  2. AUGMENTIN [Concomitant]
     Dosage: 500 MG, BID
     Route: 048
     Dates: start: 20120301, end: 20120316
  3. CLOZARIL [Suspect]
     Dosage: 250 MG, UNK
     Route: 048
     Dates: start: 20110525
  4. MADOPAR [Concomitant]
     Dosage: 1 TAB TDS
     Route: 048
  5. CLOZARIL [Suspect]
     Dosage: 225 MG, UNK
  6. PRISTAGE [Concomitant]
     Dosage: MANE
     Route: 048
  7. ARTANE [Concomitant]
     Dosage: 1/2 MANE 1/2 NOCTE
     Route: 048

REACTIONS (13)
  - DYSPNOEA [None]
  - HEART RATE INCREASED [None]
  - PYREXIA [None]
  - PULMONARY OEDEMA [None]
  - URINARY TRACT INFECTION [None]
  - RESPIRATORY RATE INCREASED [None]
  - MALAISE [None]
  - OXYGEN SATURATION DECREASED [None]
  - ORTHOSTATIC HYPOTENSION [None]
  - UPPER RESPIRATORY TRACT INFECTION [None]
  - BLOOD GLUCOSE INCREASED [None]
  - PULMONARY EMBOLISM [None]
  - ANTIPSYCHOTIC DRUG LEVEL INCREASED [None]
